FAERS Safety Report 8000324-5 (Version None)
Quarter: 2011Q4

REPORT INFORMATION
  Report Type: 
  Country: None (occurrence: None)
  Receive Date: 20111220
  Receipt Date: 20111220
  Transmission Date: 20120403
  Serious: Yes (Other)
  Sender: FDA-Public Use
  Company Number: None

PATIENT
  Sex: Male
  Weight: 93.8946 kg

DRUGS (2)
  1. XYZAL [Suspect]
     Indication: SEASONAL ALLERGY
     Dosage: XYZAL 10 MG 1 QD PO
     Route: 048
     Dates: start: 20101227, end: 20110203
  2. XYZAL [Suspect]
     Indication: PERENNIAL ALLERGY
     Dosage: XYZAL 10 MG 1 QD PO
     Route: 048
     Dates: start: 20101227, end: 20110203

REACTIONS (3)
  - DYSPNOEA [None]
  - PRODUCT SUBSTITUTION ISSUE [None]
  - RASH [None]
